FAERS Safety Report 9395752 (Version 1)
Quarter: 2013Q3

REPORT INFORMATION
  Report Type: Spontaneous
  Country: US (occurrence: US)
  Receive Date: 20130711
  Receipt Date: 20130711
  Transmission Date: 20140515
  Serious: Yes (Other)
  Sender: FDA-Public Use
  Company Number: US-TEVA-418116USA

PATIENT
  Sex: Female
  Weight: 66.28 kg

DRUGS (6)
  1. PANTOPRAZOLE [Suspect]
  2. VITAMINS [Concomitant]
  3. CALCIUM [Concomitant]
  4. FISH OIL [Concomitant]
  5. BENAZEPRIL [Concomitant]
  6. PRAVASTATIN [Concomitant]

REACTIONS (4)
  - Cholecystectomy [Unknown]
  - Arterial disorder [Unknown]
  - Thrombosis [Unknown]
  - Embolism [Unknown]
